FAERS Safety Report 18158887 (Version 2)
Quarter: 2020Q3

REPORT INFORMATION
  Report Type: Report from Study
  Country: None (occurrence: AR)
  Receive Date: 20200818
  Receipt Date: 20200915
  Transmission Date: 20201103
  Serious: Yes (Hospitalization)
  Sender: FDA-Public Use
  Company Number: AR-ABBVIE-20K-007-3526962-00

PATIENT
  Age: 77 Year
  Sex: Female

DRUGS (1)
  1. HUMIRA [Suspect]
     Active Substance: ADALIMUMAB
     Indication: RHEUMATOID ARTHRITIS
     Route: 058
     Dates: start: 20141023

REACTIONS (7)
  - Fall [Unknown]
  - Joint injury [Not Recovered/Not Resolved]
  - Eye contusion [Unknown]
  - Papule [Unknown]
  - Arthritis [Recovering/Resolving]
  - Face injury [Unknown]
  - Head injury [Unknown]

NARRATIVE: CASE EVENT DATE: 202008
